FAERS Safety Report 8800772 (Version 2)
Quarter: 2013Q1

REPORT INFORMATION
  Report Type: Spontaneous
  Country: FR (occurrence: FR)
  Receive Date: 20120920
  Receipt Date: 20130107
  Transmission Date: 20140127
  Serious: Yes (Hospitalization)
  Sender: FDA-Public Use
  Company Number: FR-BRISTOL-MYERS SQUIBB COMPANY-16952947

PATIENT
  Age: 86 Year
  Sex: Female

DRUGS (6)
  1. COAPROVEL [Suspect]
     Indication: TYPE 2 DIABETES MELLITUS
     Dosage: 1 DF = 1 INTAKE
     Route: 048
     Dates: end: 20120815
  2. LANZOR [Suspect]
     Dosage: 1 CAPS(GASTRORESISTANT MICROGRANULES IN CAPSULES )
     Route: 048
     Dates: end: 20120815
  3. LEVOTHYROX [Concomitant]
  4. KEPPRA [Concomitant]
  5. DEPAKINE CHRONO [Concomitant]
  6. NOVONORM [Concomitant]

REACTIONS (1)
  - Rhabdomyolysis [Recovered/Resolved]
